FAERS Safety Report 22154538 (Version 3)
Quarter: 2023Q2

REPORT INFORMATION
  Report Type: Spontaneous
  Country: US (occurrence: US)
  Receive Date: 20230330
  Receipt Date: 20230421
  Transmission Date: 20230722
  Serious: Yes (Other)
  Sender: FDA-Public Use
  Company Number: US-APOTEX-2023AP005780

PATIENT
  Sex: Female

DRUGS (2)
  1. FLUTICASONE PROPIONATE [Suspect]
     Active Substance: FLUTICASONE PROPIONATE
     Indication: Sinusitis
     Dosage: 4 DOSAGE FORM (2 SPRAY EACH NOSTRIL)
     Route: 045
     Dates: start: 202303, end: 202303
  2. OMEPRAZOLE [Concomitant]
     Active Substance: OMEPRAZOLE
     Indication: Oesophagitis
     Dosage: 1 DOSAGE FORM, BID
     Route: 065

REACTIONS (7)
  - Choking [Recovered/Resolved]
  - Wheezing [Recovered/Resolved]
  - Oropharyngeal discomfort [Recovered/Resolved]
  - Nasal discomfort [Recovered/Resolved]
  - Abdominal discomfort [Recovered/Resolved]
  - Throat irritation [Recovered/Resolved]
  - Drug ineffective [Unknown]

NARRATIVE: CASE EVENT DATE: 20230301
